FAERS Safety Report 13864059 (Version 2)
Quarter: 2017Q3

REPORT INFORMATION
  Report Type: Spontaneous
  Country: BR (occurrence: BR)
  Receive Date: 20170814
  Receipt Date: 20170816
  Transmission Date: 20171127
  Serious: Yes (Other)
  Sender: FDA-Public Use
  Company Number: BR-JNJFOC-20170808506

PATIENT

DRUGS (2)
  1. REMICADE [Suspect]
     Active Substance: INFLIXIMAB
     Indication: CROHN^S DISEASE
     Route: 042
  2. ADALIMUMAB [Suspect]
     Active Substance: ADALIMUMAB
     Indication: CROHN^S DISEASE
     Route: 065

REACTIONS (18)
  - Psoas abscess [Unknown]
  - Abscess [Unknown]
  - Ileostomy [Unknown]
  - Colon dysplasia [Unknown]
  - Infusion related reaction [Unknown]
  - Therapeutic response decreased [Unknown]
  - Pneumonia [Unknown]
  - Cholangitis sclerosing [Unknown]
  - Deep vein thrombosis [Unknown]
  - Surgery [Unknown]
  - Varicella zoster virus infection [Unknown]
  - Colectomy total [Unknown]
  - Myelodysplastic syndrome [Unknown]
  - Pyoderma gangrenosum [Unknown]
  - Pulmonary tuberculosis [Unknown]
  - Intestinal resection [Unknown]
  - Crohn^s disease [Unknown]
  - Eczema [Unknown]
